FAERS Safety Report 7612079-4 (Version None)
Quarter: 2011Q3

REPORT INFORMATION
  Report Type: 
  Country: None (occurrence: None)
  Receive Date: 20110715
  Receipt Date: 20110701
  Transmission Date: 20111222
  Serious: Yes (Other)
  Sender: FDA-Public Use
  Company Number: US-ELI_LILLY_AND_COMPANY-US201107002067

PATIENT
  Sex: Female

DRUGS (3)
  1. ZOCOR [Concomitant]
  2. FERROUS SULFATE TAB [Concomitant]
     Indication: MINERAL SUPPLEMENTATION
  3. FORTEO [Suspect]
     Indication: OSTEOPOROSIS
     Dosage: 20 UG, QD
     Route: 065
     Dates: start: 20101101

REACTIONS (14)
  - CHOLELITHIASIS [None]
  - DYSPEPSIA [None]
  - HEPATIC ENZYME INCREASED [None]
  - BACK PAIN [None]
  - PANCREATIC CYST [None]
  - NECK DEFORMITY [None]
  - HEPATIC CYST [None]
  - NERVOUSNESS [None]
  - BONE CYST [None]
  - PANCREATIC DISORDER [None]
  - FEELING ABNORMAL [None]
  - MEMORY IMPAIRMENT [None]
  - ANAEMIA [None]
  - BLOOD IRON INCREASED [None]
